FAERS Safety Report 10491187 (Version 1)
Quarter: 2014Q4

REPORT INFORMATION
  Report Type: Spontaneous
  Country: US (occurrence: US)
  Receive Date: 20141002
  Receipt Date: 20141002
  Transmission Date: 20150528
  Serious: No
  Sender: FDA-Public Use
  Company Number: US-GLAXOSMITHKLINE-A1048863A

PATIENT
  Sex: Male

DRUGS (6)
  1. BLOOD THINNER [Concomitant]
     Active Substance: UNSPECIFIED INGREDIENT
  2. PEPCID [Concomitant]
     Active Substance: FAMOTIDINE
  3. PREDNISONE. [Concomitant]
     Active Substance: PREDNISONE
  4. ADVAIR HFA [Suspect]
     Active Substance: FLUTICASONE PROPIONATE\SALMETEROL XINAFOATE
     Indication: ASTHMA
     Dosage: 1PUFF TWICE PER DAY
     Route: 055
     Dates: start: 2010
  5. THYROID MEDICATION [Concomitant]
     Active Substance: UNSPECIFIED INGREDIENT
  6. FLOVENT [Suspect]
     Active Substance: FLUTICASONE PROPIONATE
     Indication: ASTHMA
     Dosage: 2PUFF TWICE PER DAY
     Route: 055
     Dates: start: 2003, end: 2010

REACTIONS (4)
  - Drug ineffective [Unknown]
  - Dysphonia [Unknown]
  - Lung hyperinflation [Unknown]
  - Nasopharyngitis [Unknown]

NARRATIVE: CASE EVENT DATE: 2003
